FAERS Safety Report 11932140 (Version 1)
Quarter: 2016Q1

REPORT INFORMATION
  Report Type: Spontaneous
  Country: US (occurrence: US)
  Receive Date: 20160120
  Receipt Date: 20160120
  Transmission Date: 20160526
  Serious: Yes (Death, Life-Threatening, Hospitalization)
  Sender: FDA-Public Use
  Company Number: US-APOTEX-2016AP005389

PATIENT
  Age: 18 Year
  Sex: Female

DRUGS (1)
  1. FLECAINIDE ACETATE. [Suspect]
     Active Substance: FLECAINIDE ACETATE
     Indication: PRODUCT USED FOR UNKNOWN INDICATION
     Dosage: 16 DF, SINGLE
     Route: 048

REACTIONS (8)
  - Completed suicide [Fatal]
  - Cardiac arrest [Fatal]
  - Neurological decompensation [Fatal]
  - Respiratory arrest [Fatal]
  - Hypotension [Fatal]
  - Gastrointestinal necrosis [Fatal]
  - Bradycardia [Fatal]
  - Abdominal compartment syndrome [Fatal]
